FAERS Safety Report 4500179-7 (Version None)
Quarter: 2004Q4

REPORT INFORMATION
  Report Type: 
  Country: None (occurrence: None)
  Receive Date: 20041112
  Receipt Date: 20041109
  Transmission Date: 20050328
  Serious: Yes (Death, Other)
  Sender: FDA-Public Use
  Company Number: PHEH2004US12114

PATIENT
  Age: 85 Year
  Sex: Male

DRUGS (6)
  1. DIOVAN HCT [Suspect]
     Dosage: UNK/UNK
     Route: 048
  2. NAMENDA [Suspect]
     Indication: DEMENTIA
     Dosage: 15 MG, QD
     Route: 048
     Dates: start: 20040710, end: 20040716
  3. NAMENDA [Suspect]
     Dosage: 10 MG, QD
     Route: 048
     Dates: start: 20040703, end: 20040709
  4. NAMENDA [Suspect]
     Dosage: 5 MG, QD
     Route: 048
     Dates: start: 20040626, end: 20040702
  5. ARICEPT [Concomitant]
  6. PLAVIX [Concomitant]

REACTIONS (11)
  - ALANINE AMINOTRANSFERASE INCREASED [None]
  - ASPARTATE AMINOTRANSFERASE INCREASED [None]
  - BLOOD ALKALINE PHOSPHATASE INCREASED [None]
  - BLOOD BILIRUBIN INCREASED [None]
  - BLOOD CREATININE INCREASED [None]
  - BLOOD UREA INCREASED [None]
  - CHROMATURIA [None]
  - HYPOTENSION [None]
  - LIVER DISORDER [None]
  - MULTI-ORGAN FAILURE [None]
  - RENAL FAILURE [None]
